FAERS Safety Report 22529027 (Version 1)
Quarter: 2023Q2

REPORT INFORMATION
  Report Type: Report from Study
  Country: ZA (occurrence: ZA)
  Receive Date: 20230607
  Receipt Date: 20230607
  Transmission Date: 20230722
  Serious: Yes (Death)
  Sender: FDA-Public Use
  Company Number: ZA-BAYER-2023A077683

PATIENT
  Sex: Female

DRUGS (2)
  1. EYLEA [Suspect]
     Active Substance: AFLIBERCEPT
     Indication: Neovascular age-related macular degeneration
     Dosage: 2X VIAL (BILATERAL), SOLUTION FOR INJECTION
     Dates: start: 20221125, end: 20221125
  2. EYLEA [Suspect]
     Active Substance: AFLIBERCEPT
     Dosage: 2X VIAL (BILATERAL), SOLUTION FOR INJECTION
     Dates: start: 20230201, end: 20230201

REACTIONS (1)
  - Death [Fatal]
